FAERS Safety Report 4932328-0 (Version None)
Quarter: 2006Q1

REPORT INFORMATION
  Report Type: 
  Country: None (occurrence: None)
  Receive Date: 20060301
  Receipt Date: 20060214
  Transmission Date: 20060701
  Serious: Yes (Hospitalization)
  Sender: FDA-Public Use
  Company Number: 13560

PATIENT
  Age: 15 Year
  Sex: Male

DRUGS (3)
  1. METHOTREXATE [Suspect]
     Indication: POLYARTHRITIS
     Dosage: 5 MG 2/WK SC
     Route: 058
     Dates: start: 20031201
  2. ENBREL [Suspect]
     Indication: POLYARTHRITIS
     Dosage: 25 MG 2/WK, SC
     Route: 058
     Dates: start: 20050111
  3. IBUPROFEN [Concomitant]

REACTIONS (3)
  - BODY TEMPERATURE [None]
  - COUGH [None]
  - JUVENILE ARTHRITIS [None]
